FAERS Safety Report 6348290-2 (Version None)
Quarter: 2009Q3

REPORT INFORMATION
  Report Type: 
  Country: None (occurrence: None)
  Receive Date: 20090908
  Receipt Date: 20090824
  Transmission Date: 20100115
  Serious: Yes (Hospitalization)
  Sender: FDA-Public Use
  Company Number: DSJ-2009-10908

PATIENT
  Age: 45 Year
  Sex: Female

DRUGS (5)
  1. OLMETEC [Suspect]
     Indication: HYPERTENSION
     Dosage: 20 MG, PER ORAL
     Route: 048
     Dates: start: 20090723, end: 20090727
  2. TRICHLORMETHIAZIDE [Concomitant]
  3. PRAVATIN       (PRAVASTATIN SODIUM) [Concomitant]
  4. EPADEL S          (ETHYL ICOSAPENTATE) [Concomitant]
  5. MUCOSTA (REBAMIPIDE) [Concomitant]

REACTIONS (2)
  - JAUNDICE [None]
  - LIVER DISORDER [None]
